FAERS Safety Report 17107208 (Version 1)
Quarter: 2019Q4

REPORT INFORMATION
  Report Type: Report from Study
  Country: BR (occurrence: BR)
  Receive Date: 20191203
  Receipt Date: 20191203
  Transmission Date: 20200122
  Serious: Yes (Hospitalization, Other)
  Sender: FDA-Public Use
  Company Number: BR-JNJFOC-20190903373

PATIENT
  Age: 42 Year
  Sex: Female
  Weight: 48 kg

DRUGS (2)
  1. REMICADE [Suspect]
     Active Substance: INFLIXIMAB
     Indication: CROHN^S DISEASE
     Dosage: ON WEEKS 0, 2 AND 6 AND EVERY 8 WEEKS
     Route: 042
  2. REMICADE [Suspect]
     Active Substance: INFLIXIMAB
     Route: 042
     Dates: start: 201908

REACTIONS (6)
  - Sepsis [Not Recovered/Not Resolved]
  - Haemorrhage [Recovered/Resolved]
  - Paralysis [Unknown]
  - Pain in extremity [Recovered/Resolved]
  - Nervous system disorder [Recovering/Resolving]
  - Herpes virus infection [Unknown]

NARRATIVE: CASE EVENT DATE: 2019
